FAERS Safety Report 7891989-7 (Version None)
Quarter: 2011Q4

REPORT INFORMATION
  Report Type: 
  Country: None (occurrence: None)
  Receive Date: 20111103
  Receipt Date: 20110812
  Transmission Date: 20120403
  Serious: No
  Sender: FDA-Public Use
  Company Number: US-AMGEN-USASP2011041156

PATIENT
  Sex: Male

DRUGS (7)
  1. FOLIC ACID [Concomitant]
     Dosage: 1 MG, UNK
  2. ENBREL [Suspect]
     Indication: PRODUCT USED FOR UNKNOWN INDICATION
     Dosage: 50 MG, QWK
     Route: 058
  3. SULFASALAZINE [Concomitant]
     Dosage: 500 MG, UNK
  4. SUPER B COMPL [Concomitant]
     Dosage: 250 MG, UNK
  5. VITAMIN C                          /00008001/ [Concomitant]
     Dosage: 250 MG, UNK
  6. NAPROXEN [Concomitant]
     Dosage: 250 MG, UNK
  7. FISH OIL [Concomitant]
     Dosage: UNK

REACTIONS (1)
  - INCREASED APPETITE [None]
